FAERS Safety Report 6095063-4 (Version None)
Quarter: 2009Q1

REPORT INFORMATION
  Report Type: 
  Country: None (occurrence: None)
  Receive Date: 20090227
  Receipt Date: 20080110
  Transmission Date: 20090719
  Serious: No
  Sender: FDA-Public Use
  Company Number: A0702435A

PATIENT
  Age: 80 Year
  Sex: Female

DRUGS (16)
  1. LAMICTAL [Suspect]
     Indication: BIPOLAR DISORDER
     Dosage: 25MG TWICE PER DAY
     Route: 048
     Dates: start: 20071001
  2. LYRICA [Suspect]
     Dosage: 25MG TWICE PER DAY
     Route: 048
     Dates: start: 20071001
  3. NAMENDA [Suspect]
     Indication: DEMENTIA
     Dosage: .5MG TWICE PER DAY
     Route: 048
     Dates: start: 20071001
  4. RISPERDAL [Suspect]
     Indication: AGITATION
     Dosage: .5MG TWICE PER DAY
     Route: 048
     Dates: start: 20071001
  5. NOVOLIN 70/30 [Concomitant]
  6. LISINOPRIL AND HYDROCHLOROTHIAZIDE [Concomitant]
  7. OXYBUTYNIN CHLORIDE [Concomitant]
  8. NORCO [Concomitant]
  9. PEPCID [Concomitant]
  10. ETODOLAC [Concomitant]
  11. GLYBURIDE [Concomitant]
  12. ATENOLOL [Concomitant]
  13. SENNA [Concomitant]
  14. COLACE [Concomitant]
  15. LIDOCAINE OINTMENT [Concomitant]
  16. CAPSAICIN [Concomitant]

REACTIONS (4)
  - BLOOD GLUCOSE INCREASED [None]
  - BLOOD PRESSURE INCREASED [None]
  - OEDEMA PERIPHERAL [None]
  - SOMNOLENCE [None]
